FAERS Safety Report 8799215 (Version 1)
Quarter: 2012Q4

REPORT INFORMATION
  Report Type: 
  Country: US (occurrence: US)
  Receive Date: 20120920
  Receipt Date: 20120920
  Transmission Date: 20130627
  Serious: Yes (Other)
  Sender: FDA-Public Use
  Company Number: US-BAXTER-2012BAX017222

PATIENT
  Age: 48 Year
  Sex: Female

DRUGS (6)
  1. VANCOMYCIN INJECTION, USP [Suspect]
     Indication: STAPHYLOCOCCAL INFECTION
  2. VANCOMYCIN INJECTION, USP [Suspect]
     Indication: BACTEREMIA
  3. VANCOMYCIN INJECTION, USP [Suspect]
  4. VANCOMYCIN INJECTION, USP [Suspect]
  5. VANCOMYCIN INJECTION, USP [Suspect]
  6. FUROSEMIDE [Suspect]
     Indication: DRUG USE FOR UNKNOWN INDICATION

REACTIONS (1)
  - Linear IgA disease [Recovered/Resolved]
